FAERS Safety Report 9205725 (Version 1)
Quarter: 2013Q2

REPORT INFORMATION
  Report Type: Spontaneous
  Country: NO (occurrence: None)
  Receive Date: 20130401
  Receipt Date: 20130401
  Transmission Date: 20140414
  Serious: Yes (Death)
  Sender: FDA-Public Use
  Company Number: 1653156

PATIENT
  Age: 73 Year
  Sex: Female

DRUGS (3)
  1. FLUDARABINE PHOSPHATE [Suspect]
     Indication: CHRONIC LYMPHOCYTIC LEUKAEMIA
     Route: 051
     Dates: end: 20130107
  2. CYCLOPHOSPHAMIDE [Suspect]
     Indication: CHRONIC LYMPHOCYTIC LEUKAEMIA
     Route: 051
     Dates: end: 20130107
  3. RITUXIMAB [Suspect]
     Indication: CHRONIC LYMPHOCYTIC LEUKAEMIA
     Route: 051
     Dates: end: 20130107

REACTIONS (4)
  - Subdural haemorrhage [None]
  - Haemolysis [None]
  - Thrombocytopenia [None]
  - Haematotoxicity [None]
